FAERS Safety Report 8413470-9 (Version None)
Quarter: 2012Q2

REPORT INFORMATION
  Report Type: 
  Country: None (occurrence: None)
  Receive Date: 20120605
  Receipt Date: 20120528
  Transmission Date: 20120825
  Serious: Yes (Other)
  Sender: FDA-Public Use
  Company Number: JP-JNJFOC-20120412347

PATIENT
  Age: 60 Year
  Sex: Female

DRUGS (6)
  1. OPALMON [Concomitant]
     Route: 048
  2. TRAMADOL HYDROCHLORIDE AND ACETAMINOPHEN [Suspect]
     Dosage: 1 DF X 2 PER 1 DAY
     Route: 048
     Dates: start: 20120210
  3. LANSOPRAZOLE [Concomitant]
     Route: 048
  4. LYRICA [Concomitant]
     Route: 048
  5. TRAMADOL HYDROCHLORIDE AND ACETAMINOPHEN [Suspect]
     Indication: PAIN
     Dosage: 1 DF X 4 PER 1 DAY
     Route: 048
     Dates: end: 20120423
  6. PROCHLORPERAZINE [Concomitant]
     Indication: PROPHYLAXIS OF NAUSEA AND VOMITING
     Route: 048

REACTIONS (2)
  - SPINAL COLUMN STENOSIS [None]
  - ALOPECIA [None]
